FAERS Safety Report 8319459-2 (Version None)
Quarter: 2012Q2

REPORT INFORMATION
  Report Type: 
  Country: None (occurrence: None)
  Receive Date: 20120427
  Receipt Date: 20120420
  Transmission Date: 20120825
  Serious: Yes (Other)
  Sender: FDA-Public Use
  Company Number: US-BAYER-2012-039840

PATIENT

DRUGS (1)
  1. ONE-A-DAY ESSENTIAL [Suspect]
     Dosage: UNK
     Route: 048

REACTIONS (1)
  - OESOPHAGEAL INJURY [None]
